FAERS Safety Report 6501698-4 (Version None)
Quarter: 2009Q4

REPORT INFORMATION
  Report Type: 
  Country: None (occurrence: None)
  Receive Date: 20091216
  Receipt Date: 20091209
  Transmission Date: 20100525
  Serious: Yes (Hospitalization)
  Sender: FDA-Public Use
  Company Number: NL-TEVA-217767ISR

PATIENT
  Sex: Female
  Weight: 84 kg

DRUGS (1)
  1. METOPROLOL TARTRATE [Suspect]
     Indication: HYPERTENSION
     Dates: start: 20090406, end: 20091115

REACTIONS (1)
  - HEPATIC NECROSIS [None]
